FAERS Safety Report 4996513-4 (Version None)
Quarter: 2006Q2

REPORT INFORMATION
  Report Type: 
  Country: None (occurrence: None)
  Receive Date: 20060505
  Receipt Date: 20060422
  Transmission Date: 20061013
  Serious: Yes (Death)
  Sender: FDA-Public Use
  Company Number: 163-20785-05010071

PATIENT
  Age: 62 Year
  Sex: Female

DRUGS (5)
  1. THALOMID [Suspect]
     Indication: MULTIPLE MYELOMA
     Dosage: 50 MG, DAILY, ORAL
     Route: 048
     Dates: start: 20041215, end: 20041201
  2. THALOMID [Suspect]
     Indication: MULTIPLE MYELOMA
     Dosage: 50 MG, DAILY, ORAL
     Route: 048
     Dates: end: 20050101
  3. AREDIA [Concomitant]
  4. DECADRON SRC [Concomitant]
  5. DILANTIN [Concomitant]

REACTIONS (4)
  - DISEASE PROGRESSION [None]
  - LUNG NEOPLASM MALIGNANT [None]
  - SEDATION [None]
  - TREATMENT NONCOMPLIANCE [None]
